FAERS Safety Report 9207648 (Version 1)
Quarter: 2013Q2

REPORT INFORMATION
  Report Type: Spontaneous
  Country: US (occurrence: US)
  Receive Date: 20130403
  Receipt Date: 20130403
  Transmission Date: 20140414
  Serious: No
  Sender: FDA-Public Use
  Company Number: US-BAYER-2013-037700

PATIENT
  Sex: 0

DRUGS (1)
  1. ALEVE CAPLET [Suspect]
     Dosage: UNK

REACTIONS (11)
  - Pruritus [None]
  - Abdominal discomfort [None]
  - Erythema [None]
  - Skin warm [None]
  - Hyperhidrosis [None]
  - Diarrhoea [None]
  - Vomiting [None]
  - Drug hypersensitivity [None]
  - Dizziness [None]
  - Palpitations [None]
  - Syncope [None]
